FAERS Safety Report 9599877 (Version 1)
Quarter: 2013Q4

REPORT INFORMATION
  Report Type: Spontaneous
  Country: US (occurrence: US)
  Receive Date: 20131004
  Receipt Date: 20131004
  Transmission Date: 20140711
  Serious: No
  Sender: FDA-Public Use
  Company Number: US-AMGEN-USASP2013031868

PATIENT
  Age: 62 Year
  Sex: Female
  Weight: 86.62 kg

DRUGS (12)
  1. ENBREL [Suspect]
     Indication: PRODUCT USED FOR UNKNOWN INDICATION
     Dosage: 50 MG, QWK
     Route: 058
  2. FOLIC ACID [Concomitant]
     Dosage: UNK
  3. METHOTREXATE [Concomitant]
     Dosage: 2.5 MG, UNK
  4. LEVOTHYROXIN [Concomitant]
     Dosage: 125 MUG, UNK
  5. AMLODIPINE [Concomitant]
     Dosage: 5 MG, UNK
  6. METFORMIN [Concomitant]
     Dosage: 500 MG, UNK
  7. PRAVASTATIN [Concomitant]
     Dosage: 40 MG, UNK
  8. LOSARTAN POTASSIUM [Concomitant]
     Dosage: 50 MG, UNK
  9. MICROZIDE                          /00022001/ [Concomitant]
     Dosage: 12.5 MG, UNK
  10. LOFIBRA                            /00465701/ [Concomitant]
     Dosage: 200 MG, UNK
  11. BABY ASPIRIN [Concomitant]
     Dosage: 81 MG, UNK, CHW
  12. MELOXICAM [Concomitant]
     Dosage: 7.5 MG, UNK

REACTIONS (1)
  - Abdominal pain upper [Unknown]
